FAERS Safety Report 19752899 (Version 1)
Quarter: 2021Q3

REPORT INFORMATION
  Report Type: Spontaneous
  Country: US (occurrence: US)
  Receive Date: 20210827
  Receipt Date: 20210827
  Transmission Date: 20211014
  Serious: No
  Sender: FDA-Public Use
  Company Number: US-HIKMA PHARMACEUTICALS USA INC.-US-H14001-21-02044

PATIENT
  Sex: Female

DRUGS (7)
  1. VITAMINE C [Concomitant]
     Active Substance: ASCORBIC ACID
     Indication: PRODUCT USED FOR UNKNOWN INDICATION
     Dosage: UNKNOWN
     Route: 065
  2. METHOTREXATE. [Suspect]
     Active Substance: METHOTREXATE
     Indication: RHEUMATOID ARTHRITIS
     Route: 048
     Dates: start: 2020, end: 202101
  3. D2 [Concomitant]
     Indication: ORAL HERPES
     Dosage: UNKNOWN
     Route: 065
  4. COVID?19 VACCINE [Concomitant]
     Indication: COVID-19 IMMUNISATION
     Dosage: UNKNOWN
     Route: 065
     Dates: start: 20210219
  5. ZINC. [Concomitant]
     Active Substance: ZINC
     Indication: ORAL HERPES
     Dosage: UNKNOWN
     Route: 065
  6. ACYCLOVIR. [Concomitant]
     Active Substance: ACYCLOVIR
     Indication: ORAL HERPES
     Dosage: UNKNOWN
     Route: 065
  7. LYSIN [Concomitant]
     Indication: ORAL HERPES
     Dosage: UNKNOWN
     Route: 065

REACTIONS (5)
  - Gingivitis [Recovering/Resolving]
  - Oral herpes [Unknown]
  - Fatigue [Unknown]
  - Mouth swelling [Recovering/Resolving]
  - Tooth loss [Unknown]

NARRATIVE: CASE EVENT DATE: 2020
